FAERS Safety Report 15531867 (Version 2)
Quarter: 2018Q4

REPORT INFORMATION
  Report Type: Spontaneous
  Country: CL (occurrence: CL)
  Receive Date: 20181019
  Receipt Date: 20181023
  Transmission Date: 20190205
  Serious: Yes (Hospitalization, Other)
  Sender: FDA-Public Use
  Company Number: CL-ENDO PHARMACEUTICALS INC-2018-042144

PATIENT
  Age: 65 Year
  Sex: Female

DRUGS (1)
  1. BUPROPION HYDROCHLORIDE XL [Suspect]
     Active Substance: BUPROPION HYDROCHLORIDE
     Indication: PRODUCT USED FOR UNKNOWN INDICATION
     Dosage: 9.5 G, UNKNOWN
     Route: 065

REACTIONS (9)
  - Overdose [Unknown]
  - Coma [Unknown]
  - Myoclonus [Unknown]
  - Electrocardiogram QT prolonged [Unknown]
  - Cardiac arrest [Recovered/Resolved]
  - Seizure [Unknown]
  - Hypotension [Unknown]
  - Depressed level of consciousness [Unknown]
  - Gaze palsy [Recovered/Resolved]
